FAERS Safety Report 10729033 (Version 3)
Quarter: 2017Q2

REPORT INFORMATION
  Report Type: Spontaneous
  Country: US (occurrence: US)
  Receive Date: 20150122
  Receipt Date: 20170403
  Transmission Date: 20170829
  Serious: No
  Sender: FDA-Public Use
  Company Number: US-PFIZER INC-2015026922

PATIENT
  Age: 54 Year
  Sex: Female

DRUGS (17)
  1. LEVAQUIN [Suspect]
     Active Substance: LEVOFLOXACIN
     Dosage: UNK
  2. VERAPAMIL HCL [Suspect]
     Active Substance: VERAPAMIL HYDROCHLORIDE
     Dosage: UNK
  3. CODEINE [Suspect]
     Active Substance: CODEINE
     Dosage: UNK
  4. SULFADIAZINE. [Suspect]
     Active Substance: SULFADIAZINE
     Dosage: UNK
  5. LOSARTAN. [Suspect]
     Active Substance: LOSARTAN
     Dosage: UNK
  6. BUTRANS [Suspect]
     Active Substance: BUPRENORPHINE
     Dosage: UNK
  7. SULFAMETHOXAZOLE/TRIMETHOPRIM [Suspect]
     Active Substance: SULFAMETHOXAZOLE\TRIMETHOPRIM
     Dosage: UNK
  8. SEPTRA [Suspect]
     Active Substance: SULFAMETHOXAZOLE\TRIMETHOPRIM
     Dosage: UNK
  9. BACLOFEN. [Suspect]
     Active Substance: BACLOFEN
     Dosage: UNK
  10. NEURONTIN [Suspect]
     Active Substance: GABAPENTIN
     Dosage: UNK
  11. VOLTAREN [Suspect]
     Active Substance: DICLOFENAC SODIUM
     Dosage: UNK
  12. SULFAMETHOXAZOLE [Suspect]
     Active Substance: SULFAMETHOXAZOLE
     Dosage: UNK
  13. ERYTHROMYCIN. [Suspect]
     Active Substance: ERYTHROMYCIN
     Dosage: UNK
  14. REGLAN [Suspect]
     Active Substance: METOCLOPRAMIDE HYDROCHLORIDE
     Dosage: UNK
  15. PREDNISONE. [Suspect]
     Active Substance: PREDNISONE
     Dosage: UNK
  16. TOPAMAX [Suspect]
     Active Substance: TOPIRAMATE
     Dosage: UNK
  17. DEMEROL [Suspect]
     Active Substance: MEPERIDINE HYDROCHLORIDE
     Dosage: UNK

REACTIONS (1)
  - Drug hypersensitivity [Unknown]
